FAERS Safety Report 4397384-X (Version None)
Quarter: 2004Q3

REPORT INFORMATION
  Report Type: 
  Country: None (occurrence: None)
  Receive Date: 20040708
  Receipt Date: 20040624
  Transmission Date: 20050211
  Serious: Yes (Hospitalization)
  Sender: FDA-Public Use
  Company Number: 04P-087-0250792-00

PATIENT
  Age: 17 Day
  Sex: Female
  Weight: 4.2 kg

DRUGS (2)
  1. BIAXIN [Suspect]
     Indication: NASAL CONGESTION
     Dosage: 13.3 MG, 3 IN 1 D, PER ORAL
     Route: 048
     Dates: start: 20040210, end: 20040213
  2. AMROXOL HYDROCHLORIDE [Concomitant]

REACTIONS (6)
  - BONE MARROW TRANSPLANT [None]
  - DERMATITIS EXFOLIATIVE [None]
  - HISTIOCYTOSIS HAEMATOPHAGIC [None]
  - IMMUNODEFICIENCY CONGENITAL [None]
  - RESPIRATORY FAILURE [None]
  - WHITE BLOOD CELL COUNT DECREASED [None]
